FAERS Safety Report 7746841-4 (Version None)
Quarter: 2011Q3

REPORT INFORMATION
  Report Type: 
  Country: None (occurrence: None)
  Receive Date: 20110909
  Receipt Date: 20110825
  Transmission Date: 20111222
  Serious: Yes (Other)
  Sender: FDA-Public Use
  Company Number: USA/USA/11/0020820

PATIENT
  Age: 59 Year
  Sex: Female

DRUGS (5)
  1. ESTRASORB [Concomitant]
  2. LISINOPRIL [Concomitant]
  3. CIPROFLOXACIN [Suspect]
     Indication: CYSTITIS
     Dosage: 2 IN 1 D, ORAL
     Route: 048
     Dates: start: 20110803, end: 20110804
  4. AMLODIPINE BESYLATE [Concomitant]
  5. VIVELLE-DOT [Concomitant]

REACTIONS (4)
  - ASTHENIA [None]
  - GAIT DISTURBANCE [None]
  - ARTHRALGIA [None]
  - FATIGUE [None]
